FAERS Safety Report 13911152 (Version 1)
Quarter: 2017Q3

REPORT INFORMATION
  Report Type: Spontaneous
  Country: US (occurrence: US)
  Receive Date: 20170828
  Receipt Date: 20170828
  Transmission Date: 20171127
  Serious: No
  Sender: FDA-Public Use
  Company Number: US-LANNETT COMPANY, INC.-US-2017LAN000510

PATIENT

DRUGS (1)
  1. MONTELUKAST SODIUM. [Suspect]
     Active Substance: MONTELUKAST SODIUM
     Indication: PRODUCT USED FOR UNKNOWN INDICATION
     Dosage: 10 MG, TAKEN ONCE A DAY AT NIGHT, QD
     Dates: start: 2016, end: 20170219

REACTIONS (5)
  - Haemoglobin decreased [Recovering/Resolving]
  - Abdominal pain upper [Unknown]
  - Platelet count decreased [Recovering/Resolving]
  - Contusion [Unknown]
  - Malaise [Unknown]

NARRATIVE: CASE EVENT DATE: 201701
